FAERS Safety Report 8587056 (Version 4)
Quarter: 2013Q3

REPORT INFORMATION
  Report Type: Spontaneous
  Country: US (occurrence: US)
  Receive Date: 20120530
  Receipt Date: 20130812
  Transmission Date: 20140515
  Serious: No
  Sender: FDA-Public Use
  Company Number: US-PFIZER INC-2012127288

PATIENT
  Age: 50 Year
  Sex: Female
  Weight: 50 kg

DRUGS (7)
  1. NEURONTIN [Suspect]
     Indication: TREMOR
     Dosage: 900 MG, 3X/DAY
     Route: 048
  2. ALPRAZOLAM [Suspect]
     Dosage: 0.25 MG, 3X/DAY
     Route: 048
     Dates: start: 201205
  3. AUGMENTIN [Concomitant]
     Dosage: UNK
  4. CYCLOBENZAPRINE [Concomitant]
     Indication: SCOLIOSIS
     Dosage: 10 MG, UNK
  5. CYCLOBENZAPRINE [Concomitant]
     Indication: MUSCLE SPASMS
  6. FISH OIL [Concomitant]
     Dosage: UNK
  7. MULTIVITAMINS [Concomitant]
     Dosage: UNK

REACTIONS (8)
  - Feeling abnormal [Not Recovered/Not Resolved]
  - Speech disorder [Not Recovered/Not Resolved]
  - Somnolence [Not Recovered/Not Resolved]
  - Malaise [Unknown]
  - Reaction to drug excipients [Unknown]
  - Anxiety [Unknown]
  - Panic attack [Unknown]
  - Mental disorder [Unknown]
